FAERS Safety Report 19980431 (Version 2)
Quarter: 2022Q2

REPORT INFORMATION
  Report Type: Spontaneous
  Country: US (occurrence: None)
  Receive Date: 20211021
  Receipt Date: 20220505
  Transmission Date: 20220721
  Serious: Yes (Disabling, Other)
  Sender: FDA-Public Use
  Company Number: US-ROCHE-2938275

PATIENT
  Sex: Female
  Weight: 81.6 kg

DRUGS (13)
  1. OCREVUS [Suspect]
     Active Substance: OCRELIZUMAB
     Indication: Relapsing multiple sclerosis
     Dosage: STRENGTH: 300 MG/10 ML
     Route: 042
  2. METOPROLOL SUCCINATE [Concomitant]
     Active Substance: METOPROLOL SUCCINATE
     Route: 048
  3. ACETAMINOPHEN [Concomitant]
     Active Substance: ACETAMINOPHEN
     Route: 048
  4. DIPHENHYDRAMINE [Concomitant]
     Active Substance: DIPHENHYDRAMINE
     Route: 048
  5. COVID-19 VACCINE [Concomitant]
  6. VARICELLA-ZOSTER VACCINE NOS [Concomitant]
     Active Substance: VARICELLA-ZOSTER VACCINE
     Dosage: 1 DOSE
  7. NORVASC [Concomitant]
     Active Substance: AMLODIPINE BESYLATE
     Route: 048
  8. OSCAL D [Concomitant]
     Active Substance: CALCIUM CARBONATE\CHOLECALCIFEROL
     Dosage: STRENGTH: 500-200 MG TABLET
     Route: 048
  9. VITAMINS [Concomitant]
     Active Substance: VITAMINS
     Route: 048
  10. DIVON [Concomitant]
     Route: 048
  11. TETANUS TOXOID ADSORBED (VACCINE) [Concomitant]
     Active Substance: CLOSTRIDIUM TETANI TOXOID ANTIGEN (FORMALDEHYDE INACTIVATED)
  12. PNEUMOCOCCAL VACCINE POLYVALENT NOS [Concomitant]
     Active Substance: PNEUMOCOCCAL VACCINE POLYVALENT
     Dosage: 1 DOSE
  13. INFLUENZA VIRUS VACCINE [Concomitant]
     Active Substance: INFLUENZA VIRUS VACCINE
     Dosage: 1 DOSE

REACTIONS (20)
  - Cognitive disorder [Unknown]
  - Hypertension [Unknown]
  - Memory impairment [Unknown]
  - Eczema [Unknown]
  - Multiple sclerosis [Unknown]
  - Gait disturbance [Unknown]
  - Urinary incontinence [Unknown]
  - Specific gravity body fluid abnormal [Unknown]
  - White blood cell disorder [Unknown]
  - Vitamin D deficiency [Unknown]
  - Escherichia test positive [Unknown]
  - Hypoaesthesia [Unknown]
  - Disability [Unknown]
  - Bradykinesia [Unknown]
  - Muscular weakness [Unknown]
  - Muscle spasticity [Unknown]
  - Decreased vibratory sense [Unknown]
  - Hyperreflexia [Unknown]
  - Joint contracture [Unknown]
  - Nail growth abnormal [Unknown]

NARRATIVE: CASE EVENT DATE: 20210101
